FAERS Safety Report 9551931 (Version 1)
Quarter: 2013Q3

REPORT INFORMATION
  Report Type: Report from Study
  Country: CA (occurrence: CA)
  Receive Date: 20130925
  Receipt Date: 20130925
  Transmission Date: 20140515
  Serious: Yes (Other)
  Sender: FDA-Public Use
  Company Number: CA-JNJFOC-20130912018

PATIENT
  Age: 64 Year
  Sex: Female
  Weight: 50.35 kg

DRUGS (1)
  1. SIMPONI [Suspect]
     Indication: RHEUMATOID ARTHRITIS
     Dosage: 0.5 ML
     Route: 058
     Dates: start: 201209, end: 201212

REACTIONS (4)
  - Pneumonia [Recovered/Resolved]
  - Adverse event [Recovered/Resolved]
  - Pyrexia [Recovered/Resolved]
  - Joint swelling [Recovered/Resolved]
